FAERS Safety Report 7832028-3 (Version None)
Quarter: 2011Q4

REPORT INFORMATION
  Report Type: 
  Country: None (occurrence: None)
  Receive Date: 20111021
  Receipt Date: 20111012
  Transmission Date: 20120403
  Serious: Yes (Other)
  Sender: FDA-Public Use
  Company Number: US-ASTRAZENECA-2011SE61400

PATIENT
  Sex: Female

DRUGS (2)
  1. BEVACIZUMAB [Suspect]
     Indication: BREAST CANCER
     Route: 042
  2. ANASTROZOLE [Suspect]
     Indication: BREAST CANCER
     Route: 048

REACTIONS (11)
  - VOMITING [None]
  - LIVER FUNCTION TEST ABNORMAL [None]
  - COUGH [None]
  - FATIGUE [None]
  - HEADACHE [None]
  - ARTHRALGIA [None]
  - DYSPNOEA [None]
  - DRUG INTOLERANCE [None]
  - THROMBOCYTOPENIA [None]
  - DIARRHOEA [None]
  - TOXICITY TO VARIOUS AGENTS [None]
